FAERS Safety Report 5722150-X (Version None)
Quarter: 2008Q2

REPORT INFORMATION
  Report Type: 
  Country: None (occurrence: None)
  Receive Date: 20080429
  Receipt Date: 20070515
  Transmission Date: 20081010
  Serious: No
  Sender: FDA-Public Use
  Company Number: US-ASTRAZENECA-2007UW12068

PATIENT
  Age: 51 Year
  Sex: Female
  Weight: 61.2 kg

DRUGS (5)
  1. NEXIUM [Suspect]
     Indication: BARRETT'S OESOPHAGUS
     Route: 048
     Dates: start: 20070509
  2. NEXIUM [Suspect]
     Route: 048
  3. HYDROCHLOROTHIAZIDE [Concomitant]
  4. CARAFATE [Concomitant]
  5. LEXAPRO [Concomitant]

REACTIONS (2)
  - CHEST PAIN [None]
  - PHARYNGOLARYNGEAL PAIN [None]
